FAERS Safety Report 9230568 (Version 1)
Quarter: 2013Q2

REPORT INFORMATION
  Report Type: Spontaneous
  Country: AU (occurrence: AU)
  Receive Date: 20130415
  Receipt Date: 20130415
  Transmission Date: 20140414
  Serious: Yes (Hospitalization)
  Sender: FDA-Public Use
  Company Number: AU-AMGEN-AUSSP2013023767

PATIENT
  Age: 74 Year
  Sex: Female

DRUGS (10)
  1. PROLIA [Suspect]
     Indication: OSTEOPOROSIS
     Dosage: 60 MG, Q6MO
     Dates: start: 20121008
  2. CARDIZEM CD [Concomitant]
     Dosage: 240 MG, UNK
  3. NOCTE [Concomitant]
  4. CARTIA                             /00002701/ [Concomitant]
     Dosage: 150 MG, UNK
  5. ASPIRIN [Concomitant]
  6. DIAMICRON [Concomitant]
     Indication: DIABETES MELLITUS
  7. NEXIUM                             /01479302/ [Concomitant]
     Indication: GASTROINTESTINAL DISORDER
  8. CALCIUM +VIT D [Concomitant]
  9. THYROXINE [Concomitant]
     Dosage: 50 MG, UNK
  10. OMACOR [Concomitant]
     Indication: LIPIDS

REACTIONS (15)
  - Chest discomfort [Recovered/Resolved]
  - Musculoskeletal chest pain [Recovered/Resolved]
  - Escherichia urinary tract infection [Recovered/Resolved]
  - Orthostatic hypotension [Recovered/Resolved]
  - Pain [Unknown]
  - Chest pain [Unknown]
  - Flushing [Unknown]
  - Feeling abnormal [Unknown]
  - Dizziness [Unknown]
  - Headache [Unknown]
  - Malaise [Unknown]
  - Fatigue [Unknown]
  - Dyspepsia [Recovered/Resolved]
  - Constipation [Recovered/Resolved]
  - Blood pressure abnormal [Unknown]
